FAERS Safety Report 20679777 (Version 3)
Quarter: 2022Q4

REPORT INFORMATION
  Report Type: Other
  Country: CN (occurrence: None)
  Receive Date: 20220406
  Receipt Date: 20221007
  Transmission Date: 20230113
  Serious: Yes (Other)
  Sender: FDA-Public Use
  Company Number: CN-ROCHE-2727890

PATIENT
  Age: 46 Year
  Sex: Male
  Weight: 76 kg

DRUGS (2)
  1. AVASTIN [Suspect]
     Active Substance: BEVACIZUMAB
     Indication: Colon cancer
     Dosage: FORM OF ADMIN : 100 MG, INJECTION
     Route: 041
     Dates: start: 20170927, end: 20210622
  2. AVASTIN [Suspect]
     Active Substance: BEVACIZUMAB
     Dosage: FORM OF ADMIN : 100 MG, INJECTION
     Route: 041
     Dates: end: 20210928

REACTIONS (7)
  - Renal impairment [Unknown]
  - Protein urine present [Unknown]
  - Hypertension [Unknown]
  - Pruritus [Unknown]
  - Decreased appetite [Unknown]
  - Oedema peripheral [Unknown]
  - Dialysis [Unknown]
